FAERS Safety Report 5365537-X (Version None)
Quarter: 2007Q2

REPORT INFORMATION
  Report Type: 
  Country: None (occurrence: None)
  Receive Date: 20070621
  Receipt Date: 20070612
  Transmission Date: 20071010
  Serious: Yes (Life-Threatening)
  Sender: FDA-Public Use
  Company Number: B0422705A

PATIENT
  Age: 10 Year
  Sex: Female

DRUGS (3)
  1. FLUTICASONE PROPIONATE [Suspect]
     Indication: ASTHMA
     Dosage: 500UG PER DAY
     Route: 055
  2. BECLOMETHASONE DIPROPIONATE [Suspect]
     Indication: ASTHMA
     Dosage: 100UG PER DAY
     Route: 050
  3. BUDESONIDE [Suspect]
     Indication: DRUG USE FOR UNKNOWN INDICATION
     Route: 055
     Dates: start: 19900101, end: 19940101

REACTIONS (3)
  - ADRENAL SUPPRESSION [None]
  - GROWTH RETARDATION [None]
  - HIRSUTISM [None]
